FAERS Safety Report 8104467-7 (Version None)
Quarter: 2012Q1

REPORT INFORMATION
  Report Type: 
  Country: None (occurrence: None)
  Receive Date: 20120201
  Receipt Date: 20120123
  Transmission Date: 20120608
  Serious: Yes (Death, Hospitalization, Other)
  Sender: FDA-Public Use
  Company Number: US-PFIZER INC-2009172010

PATIENT
  Sex: Female

DRUGS (12)
  1. DILANTIN [Suspect]
     Dosage: 1000 MG, ONCE
     Route: 042
  2. SYNTHROID [Concomitant]
     Indication: HYPOTHYROIDISM
     Dosage: 125 MCG, DAILY
  3. DECADRON [Concomitant]
     Dosage: 4 MG, 3X/DAY
  4. COLACE [Concomitant]
     Dosage: 100 MG, 2X/DAY
     Route: 048
  5. LANTUS [Concomitant]
     Indication: DIABETES MELLITUS
     Dosage: 14 UNITS AT BEDTIME
  6. PROTONIX [Concomitant]
     Indication: GASTROOESOPHAGEAL REFLUX DISEASE
     Dosage: 40 MG, DAILY
     Route: 048
  7. KEPPRA [Concomitant]
     Indication: CONVULSION
     Dosage: 1500 MG, 2X/DAY
  8. AUGMENTIN '125' [Concomitant]
     Indication: RESPIRATORY FAILURE
     Dosage: 500 MG, 3X/DAY
  9. ALLOPURINOL [Concomitant]
     Indication: GOUT
     Dosage: 300 MG, DAILY
     Route: 048
  10. DILANTIN [Suspect]
     Indication: GRAND MAL CONVULSION
     Dosage: 200MG (TWO 100MG CAPSULES) IN THE MORNING AND 300 MG (THREE 100MG CAPSULES) IN NIGHT
     Route: 048
     Dates: start: 20070720, end: 20070917
  11. ATROVENT [Concomitant]
     Indication: RESPIRATORY FAILURE
     Dosage: EVERY 6 HOURS
  12. LOPRESSOR [Concomitant]
     Indication: HYPERTENSION
     Dosage: 75 MG, 2X/DAY

REACTIONS (2)
  - STEVENS-JOHNSON SYNDROME [None]
  - DEATH [None]
